FAERS Safety Report 20934750 (Version 1)
Quarter: 2022Q2

REPORT INFORMATION
  Report Type: Spontaneous
  Country: HU (occurrence: HU)
  Receive Date: 20220608
  Receipt Date: 20220608
  Transmission Date: 20220721
  Serious: Yes (Other)
  Sender: FDA-Public Use
  Company Number: HU-ANIPHARMA-2022-HU-000001

PATIENT
  Age: 57 Year
  Sex: Female

DRUGS (3)
  1. ANASTROZOLE [Suspect]
     Active Substance: ANASTROZOLE
     Indication: Breast cancer metastatic
     Dates: start: 202006
  2. TRASTUZUMAB [Suspect]
     Active Substance: TRASTUZUMAB
     Indication: Breast cancer metastatic
     Dosage: EVERY 3 WEEKS
     Route: 042
     Dates: start: 201912
  3. PERTUZUMAB [Suspect]
     Active Substance: PERTUZUMAB
     Indication: Breast cancer metastatic
     Dosage: EVERY 3 WEEKS
     Route: 042
     Dates: start: 201912

REACTIONS (4)
  - Meibomian gland dysfunction [Recovered/Resolved]
  - Conjunctival disorder [Recovered/Resolved]
  - Eye pain [Recovered/Resolved]
  - Photophobia [Recovered/Resolved]
